FAERS Safety Report 11461304 (Version 1)
Quarter: 2015Q3

REPORT INFORMATION
  Report Type: Spontaneous
  Country: US (occurrence: US)
  Receive Date: 20150831
  Receipt Date: 20150831
  Transmission Date: 20151125
  Serious: No
  Sender: FDA-Public Use
  Company Number: US-ELI_LILLY_AND_COMPANY-US201006007700

PATIENT
  Age: 47 Year
  Sex: Female

DRUGS (1)
  1. CYMBALTA [Suspect]
     Active Substance: DULOXETINE HYDROCHLORIDE
     Indication: DEPRESSION
     Dosage: 90 MG, UNK
     Dates: end: 20100622

REACTIONS (7)
  - Emotional disorder [Not Recovered/Not Resolved]
  - Drug withdrawal syndrome [Not Recovered/Not Resolved]
  - Feeling jittery [Not Recovered/Not Resolved]
  - Tremor [Not Recovered/Not Resolved]
  - Palpitations [Not Recovered/Not Resolved]
  - Depressed mood [Not Recovered/Not Resolved]
  - Anxiety [Not Recovered/Not Resolved]
